FAERS Safety Report 11485665 (Version 3)
Quarter: 2015Q4

REPORT INFORMATION
  Report Type: Report from Study
  Country: FR (occurrence: FR)
  Receive Date: 20150909
  Receipt Date: 20151125
  Transmission Date: 20160304
  Serious: Yes (Death, Hospitalization, Other)
  Sender: FDA-Public Use
  Company Number: FR-BRISTOL-MYERS SQUIBB COMPANY-BMS-2015-059810

PATIENT
  Age: 76 Year
  Sex: Female
  Weight: 65 kg

DRUGS (4)
  1. NIVOLUMAB [Suspect]
     Active Substance: NIVOLUMAB
     Indication: MALIGNANT MELANOMA
     Dosage: 177 MG, UNK
     Route: 042
     Dates: start: 20150807
  2. METHYLPREDNISOLONE. [Concomitant]
     Active Substance: METHYLPREDNISOLONE
     Indication: METASTASES TO CENTRAL NERVOUS SYSTEM
     Dosage: 40 MG, QD
     Route: 048
     Dates: start: 20150520
  3. IPILIMUMAB [Suspect]
     Active Substance: IPILIMUMAB
     Indication: MALIGNANT MELANOMA
     Dosage: UNK
     Route: 042
     Dates: start: 20150324
  4. NIVOLUMAB [Suspect]
     Active Substance: NIVOLUMAB
     Dosage: 177 MG, UNK
     Route: 065
     Dates: start: 20150821

REACTIONS (7)
  - Pneumocephalus [Fatal]
  - Blood thyroid stimulating hormone abnormal [Unknown]
  - Neurosurgery [Fatal]
  - Malignant neoplasm progression [Fatal]
  - Aphasia [Fatal]
  - General physical health deterioration [Fatal]
  - Haemorrhage intracranial [Fatal]

NARRATIVE: CASE EVENT DATE: 20150818
